FAERS Safety Report 6301541-2 (Version None)
Quarter: 2009Q3

REPORT INFORMATION
  Report Type: 
  Country: None (occurrence: None)
  Receive Date: 20090805
  Receipt Date: 20090721
  Transmission Date: 20100115
  Serious: Yes (Other)
  Sender: FDA-Public Use
  Company Number: 001295

PATIENT
  Sex: Female

DRUGS (2)
  1. NEUPRO [Suspect]
     Dosage: (6 MG, 6 MG, TRANSDERMAL)
     Route: 062
     Dates: start: 20090718
  2. MADOPAR / 00349201/ [Concomitant]

REACTIONS (3)
  - BLOOD PRESSURE FLUCTUATION [None]
  - CHILLS [None]
  - FEELING COLD [None]
